FAERS Safety Report 5323391-6 (Version None)
Quarter: 2007Q2

REPORT INFORMATION
  Report Type: 
  Country: None (occurrence: None)
  Receive Date: 20070514
  Receipt Date: 20070504
  Transmission Date: 20071010
  Serious: Yes (Other)
  Sender: FDA-Public Use
  Company Number: US-JNJFOC-20070501770

PATIENT
  Sex: Male

DRUGS (6)
  1. FENTANYL TRANSDERMAL SYSTEM [Suspect]
     Route: 062
  2. FENTANYL TRANSDERMAL SYSTEM [Suspect]
     Indication: PERIODIC LIMB MOVEMENT DISORDER
     Route: 062
  3. FENTANYL TRANSDERMAL SYSTEM [Suspect]
     Route: 062
  4. FENTANYL TRANSDERMAL SYSTEM [Suspect]
     Indication: PERIODIC LIMB MOVEMENT DISORDER
     Route: 062
  5. ALPRAZOLAM [Concomitant]
     Indication: MUSCLE TWITCHING
     Route: 065
  6. KLONAZEPAM [Concomitant]
     Indication: MUSCLE TWITCHING
     Route: 065

REACTIONS (3)
  - INCORRECT DRUG ADMINISTRATION DURATION [None]
  - MIDDLE INSOMNIA [None]
  - MUSCLE TWITCHING [None]
